FAERS Safety Report 4578682-3 (Version None)
Quarter: 2005Q1

REPORT INFORMATION
  Report Type: 
  Country: None (occurrence: None)
  Receive Date: 20050211
  Receipt Date: 20040812
  Transmission Date: 20050727
  Serious: Yes (Other)
  Sender: FDA-Public Use
  Company Number: US-ROCHE-377788

PATIENT
  Age: 49 Year
  Sex: Male
  Weight: 75.3 kg

DRUGS (2)
  1. PEGASYS [Suspect]
     Indication: HEPATITIS C
     Dosage: DOSAGE REGIMEN: 0.5
     Route: 058
     Dates: start: 20040426
  2. COPEGUS [Suspect]
     Indication: HEPATITIS C
     Dosage: DOSAGE REGIMEN REPORTED AS: 6 QD
     Route: 048
     Dates: start: 20040426

REACTIONS (3)
  - HEARING IMPAIRED [None]
  - NASAL CONGESTION [None]
  - PYREXIA [None]
